FAERS Safety Report 10505540 (Version 4)
Quarter: 2014Q4

REPORT INFORMATION
  Report Type: Spontaneous
  Country: US (occurrence: US)
  Receive Date: 20141008
  Receipt Date: 20141230
  Transmission Date: 20150528
  Serious: Yes (Death, Hospitalization, Other)
  Sender: FDA-Public Use
  Company Number: US-INCYTE CORPORATION-2014IN002883

PATIENT
  Age: 63 Year
  Sex: Male

DRUGS (11)
  1. METFORMIN [Concomitant]
     Active Substance: METFORMIN HYDROCHLORIDE
  2. FAMOTIDINE. [Concomitant]
     Active Substance: FAMOTIDINE
  3. SIMVASTATIN. [Concomitant]
     Active Substance: SIMVASTATIN
  4. LISINOPRIL. [Concomitant]
     Active Substance: LISINOPRIL
  5. DILAUDID [Concomitant]
     Active Substance: HYDROMORPHONE HYDROCHLORIDE
  6. CIPROFLOXACIN. [Concomitant]
     Active Substance: CIPROFLOXACIN
  7. JAKAFI [Interacting]
     Active Substance: RUXOLITINIB
     Indication: OFF LABEL USE
     Dosage: 10 MG, BID
     Route: 048
     Dates: start: 20140912, end: 20140923
  8. POSACONAZOLE [Interacting]
     Active Substance: POSACONAZOLE
  9. JAKAFI [Suspect]
     Active Substance: RUXOLITINIB
     Indication: MYELOID LEUKAEMIA
     Dosage: 15 MG, BID
     Route: 048
     Dates: start: 2014, end: 2014
  10. ACYCLOVIR                          /00587301/ [Concomitant]
     Active Substance: ACYCLOVIR
  11. ISOSORBIDE MONONITRATE. [Concomitant]
     Active Substance: ISOSORBIDE MONONITRATE

REACTIONS (8)
  - Disease progression [Fatal]
  - Cholecystitis acute [Unknown]
  - Platelet count decreased [Unknown]
  - Off label use [Unknown]
  - Febrile neutropenia [Unknown]
  - Staphylococcal sepsis [Fatal]
  - Drug interaction [Unknown]
  - Chest pain [Unknown]

NARRATIVE: CASE EVENT DATE: 20140330
